FAERS Safety Report 21924303 (Version 1)
Quarter: 2023Q1

REPORT INFORMATION
  Report Type: Spontaneous
  Country: US (occurrence: US)
  Receive Date: 20230130
  Receipt Date: 20230130
  Transmission Date: 20230418
  Serious: No
  Sender: FDA-Public Use
  Company Number: US-CIPLA LTD.-2022US07179

PATIENT
  Sex: Male

DRUGS (7)
  1. ALBUTEROL [Suspect]
     Active Substance: ALBUTEROL
     Indication: Asthma prophylaxis
     Dosage: UNK, PRN
  2. ALBUTEROL [Suspect]
     Active Substance: ALBUTEROL
     Dosage: UNK, PRN
     Dates: start: 20221121, end: 20221121
  3. PROVENTIL [Concomitant]
     Active Substance: ALBUTEROL
     Indication: Asthma
     Dosage: UNK, PRN, FOR EMERGENCY OR PREVENTIVE PURPOSES? NOT FOR EVERYDAY USE
     Route: 065
     Dates: start: 1992
  4. PROVENTIL [Concomitant]
     Active Substance: ALBUTEROL
     Indication: Asthma prophylaxis
  5. SEREVENT DISKUS [Concomitant]
     Active Substance: SALMETEROL XINAFOATE
     Indication: Asthma
     Dosage: UNK, QD
     Route: 065
     Dates: start: 1992
  6. METFORMIN [Concomitant]
     Active Substance: METFORMIN HYDROCHLORIDE
     Indication: Diabetes mellitus
     Dosage: 2000 MILLIGRAM, QD ( 4 TABLETS A DAY)
     Route: 065
     Dates: start: 1997
  7. TRADJENTA [Concomitant]
     Active Substance: LINAGLIPTIN
     Indication: Diabetes mellitus
     Dosage: 10 MILLIGRAM, QD
     Route: 065
     Dates: start: 1997

REACTIONS (11)
  - Cough [Recovered/Resolved]
  - Tooth disorder [Unknown]
  - Device defective [Unknown]
  - Poor quality product administered [Unknown]
  - Product odour abnormal [Unknown]
  - Product taste abnormal [Unknown]
  - Device malfunction [Unknown]
  - Suspected product contamination [Unknown]
  - Product formulation issue [Unknown]
  - Product quality issue [Unknown]
  - Product container seal issue [Unknown]

NARRATIVE: CASE EVENT DATE: 20221121
